FAERS Safety Report 13909688 (Version 2)
Quarter: 2017Q4

REPORT INFORMATION
  Report Type: Report from Study
  Country: JP (occurrence: JP)
  Receive Date: 20170828
  Receipt Date: 20171016
  Transmission Date: 20180320
  Serious: Yes (Death, Hospitalization)
  Sender: FDA-Public Use
  Company Number: JP-EISAI MEDICAL RESEARCH-EC-2016-018029

PATIENT
  Age: 75 Year
  Sex: Female
  Weight: 47 kg

DRUGS (18)
  1. LENVIMA [Suspect]
     Active Substance: LENVATINIB
     Route: 048
     Dates: start: 20150817, end: 20150904
  2. LEVOTHYROXINE SODIUM HYDRATE [Concomitant]
     Active Substance: LEVOTHYROXINE SODIUM
  3. CALCIUM LACTATE HYDRATE [Concomitant]
     Active Substance: CALCIUM LACTATE
  4. FAMOTIDINE. [Concomitant]
     Active Substance: FAMOTIDINE
  5. BESOFTEN [Concomitant]
     Active Substance: PENTOSAN POLYSULFATE SODIUM
  6. RINDERON V [Concomitant]
     Active Substance: BETAMETHASONE VALERATE
  7. ROCALTROL [Concomitant]
     Active Substance: CALCITRIOL
  8. OLMETEC [Concomitant]
     Active Substance: OLMESARTAN MEDOXOMIL
  9. JANUVIA [Concomitant]
     Active Substance: SITAGLIPTIN PHOSPHATE
  10. HOCHUEKKITO [Concomitant]
     Active Substance: HERBALS
  11. MEDICON [Concomitant]
     Active Substance: DEXTROMETHORPHAN HYDROBROMIDE
  12. NIFEDIPINE CR [Concomitant]
     Active Substance: NIFEDIPINE
  13. LENVIMA [Suspect]
     Active Substance: LENVATINIB
     Route: 048
     Dates: start: 20150715, end: 20150725
  14. LENVIMA [Suspect]
     Active Substance: LENVATINIB
     Route: 048
     Dates: start: 20150915, end: 20150924
  15. LENVIMA [Suspect]
     Active Substance: LENVATINIB
     Indication: PAPILLARY THYROID CANCER
     Route: 048
     Dates: start: 20150713, end: 20150714
  16. FLUITRAN [Concomitant]
     Active Substance: TRICHLORMETHIAZIDE
  17. CILNIDIPINE [Concomitant]
     Active Substance: CILNIDIPINE
  18. CALONAL [Concomitant]
     Active Substance: ACETAMINOPHEN

REACTIONS (2)
  - Malignant neoplasm progression [Fatal]
  - Impaired healing [Not Recovered/Not Resolved]

NARRATIVE: CASE EVENT DATE: 20150725
